FAERS Safety Report 9447822 (Version 2)
Quarter: 2014Q1

REPORT INFORMATION
  Report Type: Spontaneous
  Country: US (occurrence: US)
  Receive Date: 20130808
  Receipt Date: 20140121
  Transmission Date: 20141002
  Serious: Yes (Hospitalization, Other)
  Sender: FDA-Public Use
  Company Number: US-PFIZER INC-2013217133

PATIENT
  Age: 11 Year
  Sex: Male

DRUGS (4)
  1. DILANTIN-125 [Suspect]
     Indication: CONVULSION
     Dosage: 300 MG, 1X/DAY (EVERY BEDTIME)
     Dates: start: 20041206, end: 200501
  2. DILANTIN-125 [Suspect]
     Dosage: 100 MG, 3X/DAY
     Dates: start: 20050106
  3. THALIDOMIDE [Concomitant]
     Dosage: 100 MG, 1X/DAY (AT EVERY BEDTIME)
  4. ORAPRED [Concomitant]
     Indication: MOUTH ULCERATION
     Dosage: 20 MG, 2X/DAY

REACTIONS (2)
  - Stevens-Johnson syndrome [Recovering/Resolving]
  - Toxic epidermal necrolysis [Recovering/Resolving]
